FAERS Safety Report 25808964 (Version 1)
Quarter: 2025Q3

REPORT INFORMATION
  Report Type: Spontaneous
  Country: US (occurrence: US)
  Receive Date: 20250916
  Receipt Date: 20250916
  Transmission Date: 20251021
  Serious: Yes (Hospitalization)
  Sender: ABBVIE
  Company Number: US-ABBVIE-6457303

PATIENT
  Age: 24 Year
  Sex: Female
  Weight: 68.038 kg

DRUGS (1)
  1. RINVOQ [Suspect]
     Active Substance: UPADACITINIB
     Indication: Crohn^s disease
     Dosage: FORM STRENGTH: 45 MILLIGRAM.
     Route: 048
     Dates: start: 2025, end: 202507

REACTIONS (4)
  - Shoulder fracture [Recovering/Resolving]
  - Craniofacial fracture [Recovering/Resolving]
  - Pelvic fracture [Recovering/Resolving]
  - Road traffic accident [Recovered/Resolved]

NARRATIVE: CASE EVENT DATE: 20250530
